FAERS Safety Report 13354359 (Version 1)
Quarter: 2017Q1

REPORT INFORMATION
  Report Type: Report from Study
  Country: AR (occurrence: AR)
  Receive Date: 20170321
  Receipt Date: 20170321
  Transmission Date: 20170429
  Serious: Yes (Other)
  Sender: FDA-Public Use
  Company Number: PHHY2017AR023893

PATIENT
  Sex: Female

DRUGS (2)
  1. COSENTYX [Suspect]
     Active Substance: SECUKINUMAB
     Indication: PSORIASIS
     Dosage: 300 MG, QMO
     Route: 065
     Dates: start: 201611
  2. COSENTYX [Suspect]
     Active Substance: SECUKINUMAB
     Dosage: 300 MG, QMO
     Route: 065
     Dates: start: 20170218

REACTIONS (5)
  - Stress [Unknown]
  - Hip fracture [Recovered/Resolved]
  - Nervousness [Unknown]
  - Psoriasis [Recovering/Resolving]
  - Inappropriate schedule of drug administration [Unknown]
